FAERS Safety Report 12136407 (Version 1)
Quarter: 2016Q1

REPORT INFORMATION
  Report Type: Spontaneous
  Country: US (occurrence: US)
  Receive Date: 20160302
  Receipt Date: 20160302
  Transmission Date: 20160526
  Serious: No
  Sender: FDA-Public Use
  Company Number: US-PFIZER INC-2016065007

PATIENT
  Age: 70 Year
  Sex: Male
  Weight: 85.28 kg

DRUGS (1)
  1. TIKOSYN [Suspect]
     Active Substance: DOFETILIDE
     Indication: ATRIAL FIBRILLATION
     Dosage: UNK, 2X/DAY
     Dates: start: 20151130

REACTIONS (1)
  - Tinea pedis [Unknown]

NARRATIVE: CASE EVENT DATE: 201512
